FAERS Safety Report 8536567-1 (Version None)
Quarter: 2012Q3

REPORT INFORMATION
  Report Type: 
  Country: None (occurrence: None)
  Receive Date: 20120725
  Receipt Date: 20120716
  Transmission Date: 20120928
  Serious: Yes (Other)
  Sender: FDA-Public Use
  Company Number: US-ROCHE-1083475

PATIENT
  Sex: Female

DRUGS (12)
  1. ATENOLOL [Concomitant]
     Route: 048
  2. VENLAFAXINE HCL [Concomitant]
     Route: 048
  3. XELODA [Suspect]
     Indication: BREAST CANCER
     Route: 048
     Dates: start: 20120103, end: 20120117
  4. AREDIA [Concomitant]
  5. ACETAMINOPHEN/HYDROCODONE BITARTRATE [Concomitant]
     Route: 048
  6. GARGLE SOLUTION (CHAMOMILE/DEXPANTHENOL/MYRRH/OLEUM MENTHAE PIPERITAE/ [Concomitant]
  7. PROTONIX [Concomitant]
     Route: 048
  8. PROCHLORPERAZINE MALEATE [Concomitant]
     Route: 048
  9. VICODIN [Concomitant]
     Dosage: 5MG-500MG
     Route: 048
  10. CLARITIN [Concomitant]
  11. EXTRA STRENGTH TYLENOL [Concomitant]
     Route: 048
  12. IRON SULPHATE [Concomitant]
     Dosage: 325(65)MG TABLET
     Route: 048

REACTIONS (15)
  - HYPERAESTHESIA [None]
  - DIARRHOEA [None]
  - TENDERNESS [None]
  - SKIN ULCER [None]
  - PALMAR-PLANTAR ERYTHRODYSAESTHESIA SYNDROME [None]
  - NAUSEA [None]
  - BLISTER [None]
  - STOMATITIS [None]
  - PRURITUS [None]
  - ULCER [None]
  - HYPOPHAGIA [None]
  - RASH ERYTHEMATOUS [None]
  - MUCOSAL INFLAMMATION [None]
  - RASH [None]
  - NEUROPATHY PERIPHERAL [None]
